FAERS Safety Report 14161496 (Version 3)
Quarter: 2022Q3

REPORT INFORMATION
  Report Type: Spontaneous
  Country: US (occurrence: US)
  Receive Date: 20171106
  Receipt Date: 20220708
  Transmission Date: 20221027
  Serious: No
  Sender: FDA-Public Use
  Company Number: US-PFIZER INC-2017473001

PATIENT
  Age: 32 Year
  Sex: Female
  Weight: 125.62 kg

DRUGS (10)
  1. DOCETAXEL [Suspect]
     Active Substance: DOCETAXEL
     Indication: Breast cancer female
     Dosage: UNK, CYCLIC (EVERY 3 WEEKS FOR 4 CYCLES)
     Dates: start: 20130418, end: 20130620
  2. DOCETAXEL [Suspect]
     Active Substance: DOCETAXEL
     Indication: Breast cancer female
     Dosage: UNK, CYCLIC (EVERY 3 WEEKS FOR 4 CYCLES)
     Dates: start: 20130418, end: 20130620
  3. TAXOTERE [Suspect]
     Active Substance: DOCETAXEL
     Indication: Breast cancer female
     Dosage: UNK, CYCLIC (EVERY 3 WEEKS FOR 4 CYCLES)
     Dates: start: 20130418, end: 20130620
  4. NEOSAR [Concomitant]
     Active Substance: CYCLOPHOSPHAMIDE
     Indication: Chemotherapy
     Dosage: UNK
  5. VITAMIN C [Concomitant]
     Active Substance: ASCORBIC ACID
     Dosage: UNK, ONCE DAILY
     Dates: start: 20130409
  6. DEXAMETHASONE [Concomitant]
     Active Substance: DEXAMETHASONE
     Dosage: 1 DF, TWICE DAILY
     Dates: start: 20130401, end: 20130620
  7. FLUTICASONE PROPIONATE [Concomitant]
     Active Substance: FLUTICASONE PROPIONATE
     Dosage: 50 UG, DAILY
     Dates: start: 20100601, end: 20151231
  8. LORAZEPAM [Concomitant]
     Active Substance: LORAZEPAM
     Dosage: 1 DF, 3X/DAY (EVERY 8 HOURS)
     Route: 048
     Dates: start: 20130401, end: 20130630
  9. ZYRTEC [Concomitant]
     Active Substance: CETIRIZINE HYDROCHLORIDE
     Dosage: UNK, DAILY
     Route: 048
     Dates: start: 20130722
  10. TAMOXIFEN [Concomitant]
     Active Substance: TAMOXIFEN
     Indication: Hormone therapy
     Dosage: UNK
     Dates: start: 201310

REACTIONS (5)
  - Alopecia [Recovered/Resolved]
  - Hair texture abnormal [Recovered/Resolved]
  - Hair disorder [Recovered/Resolved]
  - Hair colour changes [Recovered/Resolved]
  - Madarosis [Recovered/Resolved]

NARRATIVE: CASE EVENT DATE: 20131201
